FAERS Safety Report 10133553 (Version 1)
Quarter: 2014Q2

REPORT INFORMATION
  Report Type: Spontaneous
  Country: US (occurrence: US)
  Receive Date: 20140428
  Receipt Date: 20140428
  Transmission Date: 20141212
  Serious: Yes (Hospitalization)
  Sender: FDA-Public Use
  Company Number: US-GLAXOSMITHKLINE-A1070310A

PATIENT
  Age: 72 Year
  Sex: Female

DRUGS (3)
  1. ADVAIR [Suspect]
     Indication: ASTHMA
     Dosage: 1PUFF TWICE PER DAY
     Route: 055
     Dates: end: 201402
  2. UNKNOWN [Concomitant]
  3. UNKNOWN CANCER THERAPY DRUG [Concomitant]

REACTIONS (2)
  - Small cell lung cancer [Unknown]
  - Cataract [Unknown]
